FAERS Safety Report 6346986-X (Version None)
Quarter: 2009Q3

REPORT INFORMATION
  Report Type: 
  Country: None (occurrence: None)
  Receive Date: 20090908
  Receipt Date: 20090908
  Transmission Date: 20100115
  Serious: Yes (Other)
  Sender: FDA-Public Use
  Company Number: None

PATIENT
  Age: 44 Year
  Sex: Female
  Weight: 77.1115 kg

DRUGS (1)
  1. LAMOTRIGINE [Suspect]
     Indication: CONVULSION
     Dosage: 200 MG 2 X DAILY PO
     Route: 048
     Dates: start: 20090901, end: 20090903

REACTIONS (6)
  - ACTIVITIES OF DAILY LIVING IMPAIRED [None]
  - DEPRESSED LEVEL OF CONSCIOUSNESS [None]
  - DIPLOPIA [None]
  - HANGOVER [None]
  - PRODUCT SUBSTITUTION ISSUE [None]
  - SPEECH DISORDER [None]
